FAERS Safety Report 25840896 (Version 2)
Quarter: 2025Q3

REPORT INFORMATION
  Report Type: Spontaneous
  Country: US (occurrence: US)
  Receive Date: 20250924
  Receipt Date: 20250930
  Transmission Date: 20251021
  Serious: Yes (Death, Life-Threatening, Hospitalization)
  Sender: MACLEODS
  Company Number: US-MLMSERVICE-20250910-PI634103-00202-2

PATIENT

DRUGS (12)
  1. LINEZOLID [Suspect]
     Active Substance: LINEZOLID
     Indication: Enterococcal infection
     Dosage: VIA A 1-HOUR INTERMITTENT INFUSION
     Route: 042
  2. LINEZOLID [Suspect]
     Active Substance: LINEZOLID
     Indication: Enterococcal infection
     Dosage: CONTINUOUS INFUSION
     Route: 065
  3. LINEZOLID [Suspect]
     Active Substance: LINEZOLID
     Indication: Empyema
     Route: 042
  4. LINEZOLID [Suspect]
     Active Substance: LINEZOLID
     Indication: Enterococcal infection
     Dosage: CONTINUOUS INFUSION
     Route: 065
  5. KETAMINE [Suspect]
     Active Substance: KETAMINE
     Indication: Pain
     Route: 065
  6. FENTANYL [Suspect]
     Active Substance: FENTANYL
     Indication: Pain
     Route: 065
  7. FENTANYL [Suspect]
     Active Substance: FENTANYL
     Indication: Sedation
  8. PROPOFOL [Concomitant]
     Active Substance: PROPOFOL
     Route: 065
  9. NOREPINEPHRINE [Concomitant]
     Active Substance: NOREPINEPHRINE
     Indication: Product used for unknown indication
     Route: 065
  10. AVIBACTAM SODIUM\CEFTAZIDIME [Concomitant]
     Active Substance: AVIBACTAM SODIUM\CEFTAZIDIME
     Indication: Product used for unknown indication
     Route: 065
  11. AZTREONAM [Concomitant]
     Active Substance: AZTREONAM
     Indication: Product used for unknown indication
     Route: 065
  12. ANIDULAFUNGIN [Concomitant]
     Active Substance: ANIDULAFUNGIN
     Indication: Product used for unknown indication
     Route: 065

REACTIONS (7)
  - Haemodynamic instability [Fatal]
  - Shock [Fatal]
  - Multiple organ dysfunction syndrome [Fatal]
  - Adrenergic syndrome [Recovered/Resolved]
  - Drug clearance decreased [Recovering/Resolving]
  - Antibiotic level above therapeutic [Recovered/Resolved]
  - Drug interaction [Recovered/Resolved]
